FAERS Safety Report 9766868 (Version 3)
Quarter: 2014Q1

REPORT INFORMATION
  Report Type: Spontaneous
  Country: US (occurrence: US)
  Receive Date: 20131217
  Receipt Date: 20140317
  Transmission Date: 20141002
  Serious: No
  Sender: FDA-Public Use
  Company Number: US-BIOGENIDEC-2013BI118836

PATIENT
  Sex: Female

DRUGS (9)
  1. TECFIDERA [Suspect]
     Indication: MULTIPLE SCLEROSIS
     Route: 048
     Dates: start: 201305
  2. TECFIDERA [Suspect]
     Indication: MULTIPLE SCLEROSIS
     Route: 048
     Dates: start: 201305
  3. TECFIDERA [Suspect]
     Indication: MULTIPLE SCLEROSIS
  4. AMPYRA [Concomitant]
     Dates: start: 201007
  5. LIPITOR [Concomitant]
  6. ASA [Concomitant]
  7. METOPROLOL SUCC ER [Concomitant]
  8. PLAVIX [Concomitant]
  9. NEURONTIN [Concomitant]

REACTIONS (4)
  - Urinary tract infection [Recovered/Resolved]
  - Gastric disorder [Recovered/Resolved]
  - Underdose [Unknown]
  - Nausea [Recovered/Resolved]
